FAERS Safety Report 4534007-0 (Version None)
Quarter: 2004Q4

REPORT INFORMATION
  Report Type: 
  Country: None (occurrence: None)
  Receive Date: 20041221
  Receipt Date: 20041221
  Transmission Date: 20050328
  Serious: Yes (Death)
  Sender: FDA-Public Use
  Company Number: None

PATIENT
  Sex: Male
  Weight: 77.3 kg

DRUGS (15)
  1. DOCETAXEL [Suspect]
     Indication: ACUTE LYMPHOCYTIC LEUKAEMIA
     Dosage: 60 MG/M2  /WEEK * 3
     Dates: start: 20041115
  2. DOCETAXEL [Suspect]
     Indication: NEOPLASM RECURRENCE
     Dosage: 60 MG/M2  /WEEK * 3
     Dates: start: 20041115
  3. DOCETAXEL [Suspect]
     Indication: ACUTE LYMPHOCYTIC LEUKAEMIA
     Dosage: 60 MG/M2  /WEEK * 3
     Dates: start: 20041124
  4. DOCETAXEL [Suspect]
     Indication: NEOPLASM RECURRENCE
     Dosage: 60 MG/M2  /WEEK * 3
     Dates: start: 20041124
  5. DOCETAXEL [Suspect]
     Indication: ACUTE LYMPHOCYTIC LEUKAEMIA
     Dosage: 60 MG/M2  /WEEK * 3
     Dates: start: 20041202
  6. DOCETAXEL [Suspect]
     Indication: NEOPLASM RECURRENCE
     Dosage: 60 MG/M2  /WEEK * 3
     Dates: start: 20041202
  7. ZOSYN [Concomitant]
  8. GENTAMYCIN [Concomitant]
  9. VORICONAZOLE [Concomitant]
  10. PREVACID [Concomitant]
  11. CARAFATE [Concomitant]
  12. COLACE [Concomitant]
  13. VISTARIL [Concomitant]
  14. TPN [Concomitant]
  15. MORPHINE [Concomitant]

REACTIONS (9)
  - BACTERIAL INFECTION [None]
  - CELLULITIS [None]
  - DECREASED APPETITE [None]
  - FATIGUE [None]
  - FEBRILE NEUTROPENIA [None]
  - GENERAL PHYSICAL HEALTH DETERIORATION [None]
  - NECK MASS [None]
  - PAIN [None]
  - PANCYTOPENIA [None]
